FAERS Safety Report 8726767 (Version 3)
Quarter: 2012Q4

REPORT INFORMATION
  Report Type: 
  Country: FR (occurrence: FR)
  Receive Date: 20120816
  Receipt Date: 20120920
  Transmission Date: 20130627
  Serious: Yes (Other)
  Sender: FDA-Public Use
  Company Number: PHHY2012FR070139

PATIENT
  Sex: Female
  Weight: 12 kg

DRUGS (1)
  1. ILARIS [Suspect]
     Dosage: 12 mg/kg, (150 mg)
     Dates: start: 20120808

REACTIONS (2)
  - Histiocytosis haematophagic [Unknown]
  - Off label use [None]
